FAERS Safety Report 12171698 (Version 2)
Quarter: 2016Q1

REPORT INFORMATION
  Report Type: Spontaneous
  Country: JP (occurrence: JP)
  Receive Date: 20160311
  Receipt Date: 20160322
  Transmission Date: 20160526
  Serious: Yes (Life-Threatening, Hospitalization)
  Sender: FDA-Public Use
  Company Number: JP-PFIZER INC-2016145273

PATIENT
  Age: 77 Year
  Sex: Male
  Weight: 64 kg

DRUGS (5)
  1. ZOSYN [Suspect]
     Active Substance: PIPERACILLIN SODIUM\TAZOBACTAM SODIUM
     Indication: SEPSIS
     Dosage: 4.5 G, 3X/DAY
     Route: 041
     Dates: start: 20160106, end: 20160111
  2. ABRAXANE [Suspect]
     Active Substance: PACLITAXEL
     Indication: LUNG NEOPLASM MALIGNANT
     Dosage: 150 MG, DAILY (WEEKLY)
     Route: 041
     Dates: start: 20151221, end: 20160104
  3. CARBOPLATIN. [Suspect]
     Active Substance: CARBOPLATIN
     Indication: LUNG NEOPLASM MALIGNANT
     Dosage: 500 MG, DAILY (ON DAY 1))
     Route: 041
     Dates: start: 20151221, end: 20151221
  4. ZOSYN [Suspect]
     Active Substance: PIPERACILLIN SODIUM\TAZOBACTAM SODIUM
     Indication: PYREXIA
  5. FILGRASTIM [Suspect]
     Active Substance: FILGRASTIM
     Indication: NEUTROPHIL COUNT DECREASED
     Dosage: 75 UG, DAILY
     Route: 058
     Dates: start: 20160106, end: 20160115

REACTIONS (4)
  - Sepsis [Recovered/Resolved]
  - Pancytopenia [Recovered/Resolved]
  - Interstitial lung disease [Recovering/Resolving]
  - Renal failure [Recovered/Resolved]

NARRATIVE: CASE EVENT DATE: 20160106
